FAERS Safety Report 19070447 (Version 1)
Quarter: 2021Q1

REPORT INFORMATION
  Report Type: Spontaneous
  Country: US (occurrence: US)
  Receive Date: 20210329
  Receipt Date: 20210329
  Transmission Date: 20210420
  Serious: No
  Sender: FDA-Public Use
  Company Number: US-JNJFOC-20210340394

PATIENT
  Age: 56 Year
  Sex: Male
  Weight: 72.64 kg

DRUGS (1)
  1. ZYRTEC [Suspect]
     Active Substance: CETIRIZINE HYDROCHLORIDE
     Indication: MULTIPLE ALLERGIES
     Dosage: 2 OR 3 TABLETS ONCE A DAY?PRODUCT LAST ADMIN DATE: 17?MAR?2021
     Route: 048
     Dates: start: 20210215

REACTIONS (3)
  - Overdose [Unknown]
  - Expired product administered [Unknown]
  - Product packaging issue [Unknown]

NARRATIVE: CASE EVENT DATE: 20210215
